FAERS Safety Report 4687534-X (Version None)
Quarter: 2005Q2

REPORT INFORMATION
  Report Type: 
  Country: None (occurrence: None)
  Receive Date: 20050608
  Receipt Date: 20050608
  Transmission Date: 20051028
  Serious: Yes (Other)
  Sender: FDA-Public Use
  Company Number: None

PATIENT
  Age: 52 Year
  Sex: Male
  Weight: 91.6266 kg

DRUGS (12)
  1. ZETIA [Suspect]
     Indication: HYPERLIPIDAEMIA
     Dosage: 10MG     Q DAY    ORAL
     Route: 048
     Dates: start: 20030608, end: 20050325
  2. ALBUTEROL [Concomitant]
  3. ATORVASTATIN CALCIUM [Concomitant]
  4. METOPROLOL [Concomitant]
  5. NIACIN -NIASPAN-KOS- [Concomitant]
  6. NITROGLYCERIN [Concomitant]
  7. OMEPRAZOLE [Concomitant]
  8. TOLNAFTATE [Concomitant]
  9. TRIAMCINOLONE [Concomitant]
  10. ASPIRIN [Concomitant]
  11. LISINOPRIL [Concomitant]
  12. LASIX [Concomitant]

REACTIONS (3)
  - ABDOMINAL PAIN [None]
  - FLATULENCE [None]
  - HEADACHE [None]
